FAERS Safety Report 6074503-0 (Version None)
Quarter: 2009Q1

REPORT INFORMATION
  Report Type: 
  Country: None (occurrence: None)
  Receive Date: 20090211
  Receipt Date: 20090203
  Transmission Date: 20090719
  Serious: Yes (Other)
  Sender: FDA-Public Use
  Company Number: US-GENENTECH-276979

PATIENT
  Sex: Male
  Weight: 104.31 kg

DRUGS (2)
  1. RITUXAN [Suspect]
     Indication: DIFFUSE LARGE B-CELL LYMPHOMA
     Dosage: UNK
     Route: 042
     Dates: start: 20030301
  2. RITUXAN [Suspect]
     Indication: LYMPHOMA
     Dosage: UNK, QW X4W Q 6MO
     Route: 042
     Dates: start: 20041201

REACTIONS (1)
  - LYMPHOMA TRANSFORMATION [None]
